FAERS Safety Report 8877344 (Version 3)
Quarter: 2014Q1

REPORT INFORMATION
  Report Type: Spontaneous
  Country: US (occurrence: None)
  Receive Date: 20120426
  Receipt Date: 20130107
  Transmission Date: 20141002
  Serious: Yes (Other)
  Sender: FDA-Public Use
  Company Number: PHEH2012US002653

PATIENT
  Age: 37 Year
  Sex: Female
  Weight: 68 kg

DRUGS (5)
  1. GILENYA [Suspect]
     Route: 048
  2. BUSPIRONE (BUSPIRONE) [Concomitant]
  3. CARBAMAZEPINE (CARBAMAZEPINE) [Concomitant]
  4. MULTIVITAMINS (ASCORBIC ACID, ERGOCALCIFEROL, FOLIC ACID, NICOTINAMIDE, PANTHENOL, RETINOL, RIBOFLAVIN, THIAMINE HYDROCHLORIDE) [Concomitant]
  5. VITAMIN D (ERGOCALCIFEROL) [Concomitant]

REACTIONS (4)
  - Herpes virus infection [None]
  - Hypoglycaemia [None]
  - Thirst [None]
  - Genital rash [None]
